FAERS Safety Report 21159337 (Version 1)
Quarter: 2022Q3

REPORT INFORMATION
  Report Type: Spontaneous
  Country: None (occurrence: US)
  Receive Date: 20220802
  Receipt Date: 20220802
  Transmission Date: 20221027
  Serious: No
  Sender: FDA-Public Use
  Company Number: US-Ajanta Pharma USA Inc.-2131443

PATIENT
  Age: 77 Year
  Sex: Male
  Weight: 81.818 kg

DRUGS (4)
  1. SILDENAFIL CITRATE [Suspect]
     Active Substance: SILDENAFIL CITRATE
     Indication: Erectile dysfunction
     Route: 048
  2. ATORVASTATIN CALCIUM [Concomitant]
     Active Substance: ATORVASTATIN CALCIUM
  3. LEVOTHYROXINE [Concomitant]
     Active Substance: LEVOTHYROXINE
  4. VITAMIN B [Concomitant]
     Active Substance: VITAMIN B

REACTIONS (6)
  - Drug ineffective [Recovered/Resolved]
  - Malaise [Not Recovered/Not Resolved]
  - Throat irritation [Recovered/Resolved]
  - Eructation [Recovering/Resolving]
  - Dyspnoea [Unknown]
  - Pain [Unknown]

NARRATIVE: CASE EVENT DATE: 20220101
